FAERS Safety Report 25792494 (Version 1)
Quarter: 2025Q3

REPORT INFORMATION
  Report Type: Spontaneous
  Country: EU (occurrence: EU)
  Receive Date: 20250911
  Receipt Date: 20250911
  Transmission Date: 20251021
  Serious: Yes (Other)
  Sender: MYLAN
  Company Number: EU-ASTRAZENECA-202507GLO029868FR

PATIENT
  Age: 41 Year
  Sex: Male
  Weight: 84 kg

DRUGS (8)
  1. ATENOLOL [Suspect]
     Active Substance: ATENOLOL
     Indication: Hypertension
  2. ATENOLOL [Suspect]
     Active Substance: ATENOLOL
     Route: 048
  3. ATENOLOL [Suspect]
     Active Substance: ATENOLOL
     Route: 048
  4. ATENOLOL [Suspect]
     Active Substance: ATENOLOL
  5. REPEVAX [Suspect]
     Active Substance: DIPHTHERIA AND TETANUS TOXOIDS AND ACELLULAR PERTUSSIS ADSORBED AND INACTIVATED POLIOVIRUS VACCINE
     Indication: Immunisation
     Dates: start: 20250305, end: 20250305
  6. REPEVAX [Suspect]
     Active Substance: DIPHTHERIA AND TETANUS TOXOIDS AND ACELLULAR PERTUSSIS ADSORBED AND INACTIVATED POLIOVIRUS VACCINE
     Route: 030
     Dates: start: 20250305, end: 20250305
  7. REPEVAX [Suspect]
     Active Substance: DIPHTHERIA AND TETANUS TOXOIDS AND ACELLULAR PERTUSSIS ADSORBED AND INACTIVATED POLIOVIRUS VACCINE
     Route: 030
     Dates: start: 20250305, end: 20250305
  8. REPEVAX [Suspect]
     Active Substance: DIPHTHERIA AND TETANUS TOXOIDS AND ACELLULAR PERTUSSIS ADSORBED AND INACTIVATED POLIOVIRUS VACCINE
     Dates: start: 20250305, end: 20250305

REACTIONS (1)
  - Toxic skin eruption [Recovering/Resolving]
